FAERS Safety Report 6829767-X (Version None)
Quarter: 2010Q3

REPORT INFORMATION
  Report Type: 
  Country: None (occurrence: None)
  Receive Date: 20100706
  Receipt Date: 20100621
  Transmission Date: 20110219
  Serious: No
  Sender: FDA-Public Use
  Company Number: 004502

PATIENT
  Sex: Female
  Weight: 88.4 kg

DRUGS (3)
  1. KEPPRA [Suspect]
     Indication: CONVULSION
     Dosage: 750MG;QD ORAL, (1 1/2 TABLETTOF KEPPRA XR 750MG. ORAL), (1500 QD ORAL),(750MG BID), (3 TABLETS HS).
  2. LORTAB [Concomitant]
  3. SULFAMETHIZOL [Concomitant]

REACTIONS (10)
  - CHEST DISCOMFORT [None]
  - CHEST PAIN [None]
  - CONVULSIONS LOCAL [None]
  - DIZZINESS [None]
  - DRUG DOSE OMISSION [None]
  - DYSPNOEA [None]
  - INSOMNIA [None]
  - TREMOR [None]
  - VISION BLURRED [None]
  - WEIGHT DECREASED [None]
